FAERS Safety Report 24110621 (Version 1)
Quarter: 2024Q3

REPORT INFORMATION
  Report Type: Spontaneous
  Country: CN (occurrence: CN)
  Receive Date: 20240718
  Receipt Date: 20240718
  Transmission Date: 20241017
  Serious: No
  Sender: FRESENIUS KABI
  Company Number: CN-FreseniusKabi-FK202411225

PATIENT
  Age: 39 Year
  Sex: Male
  Weight: 71 kg

DRUGS (2)
  1. PROPOFOL [Suspect]
     Active Substance: PROPOFOL
     Indication: General anaesthesia
     Dosage: FOA-INJECTION
     Route: 042
     Dates: start: 20240713, end: 20240713
  2. LIDOCAINE [Concomitant]
     Active Substance: LIDOCAINE
     Indication: Injection site pain
     Dosage: DOSE-3ML/60MG
     Route: 042
     Dates: start: 20240713, end: 20240713

REACTIONS (2)
  - Seizure [Recovering/Resolving]
  - Muscle twitching [Recovering/Resolving]

NARRATIVE: CASE EVENT DATE: 20240713
